FAERS Safety Report 6035372-8 (Version None)
Quarter: 2009Q1

REPORT INFORMATION
  Report Type: 
  Country: None (occurrence: None)
  Receive Date: 20090109
  Receipt Date: 20090109
  Transmission Date: 20090719
  Serious: No
  Sender: FDA-Public Use
  Company Number: None

PATIENT
  Sex: Female
  Weight: 60.45 kg

DRUGS (6)
  1. CYMBALTA [Suspect]
     Dosage: 30MG CAPSULE DR 60 MG QD ORAL
     Route: 048
     Dates: start: 20081010, end: 20090109
  2. BACLOFEN [Concomitant]
  3. FLAGYL [Concomitant]
  4. LO/OVRAL [Concomitant]
  5. OXYCODONE HCL [Concomitant]
  6. PRILOSEC [Concomitant]

REACTIONS (1)
  - NAUSEA [None]
